FAERS Safety Report 20913766 (Version 1)
Quarter: 2022Q2

REPORT INFORMATION
  Report Type: Report from Study
  Country: US (occurrence: US)
  Receive Date: 20220604
  Receipt Date: 20220604
  Transmission Date: 20220720
  Serious: Yes (Other)
  Sender: FDA-Public Use
  Company Number: US-BRISTOL-MYERS SQUIBB COMPANY-2022-016922

PATIENT
  Age: 64 Year
  Sex: Female
  Weight: 58.06 kg

DRUGS (21)
  1. REVLIMID [Suspect]
     Active Substance: LENALIDOMIDE
     Indication: Plasma cell myeloma
     Route: 048
  2. REVLIMID [Suspect]
     Active Substance: LENALIDOMIDE
     Indication: Plasma cell myeloma in remission
     Route: 048
     Dates: start: 201912
  3. REVLIMID [Suspect]
     Active Substance: LENALIDOMIDE
     Indication: Plasma cell myeloma
  4. VITAMIN B COMPLEX [CALCIUM PANTOTHENATE;CYANOCOBALAMIN;ERGOCALCIFEROL; [Concomitant]
  5. VITAMIN C [Concomitant]
     Active Substance: ASCORBIC ACID
  6. ASPIRIN [Concomitant]
     Active Substance: ASPIRIN
     Dosage: 81
  7. DEXAMETHASONE [Concomitant]
     Active Substance: DEXAMETHASONE
  8. ENALAPRIL [Concomitant]
     Active Substance: ENALAPRIL
  9. SYNTHROID [Concomitant]
     Active Substance: LEVOTHYROXINE SODIUM
  10. ZOMETA [Concomitant]
     Active Substance: ZOLEDRONIC ACID
  11. CLARITIN [Concomitant]
     Active Substance: LORATADINE
  12. OSCAL [Concomitant]
     Active Substance: CALCIUM CARBONATE
     Dosage: 500/200 D-3,
  13. SIMVASTATIN [Concomitant]
     Active Substance: SIMVASTATIN
  14. PROCHLORPERAZINE MALEATE [Concomitant]
     Active Substance: PROCHLORPERAZINE MALEATE
  15. ZOVIRAX [Concomitant]
     Active Substance: ACYCLOVIR
  16. NEXIUM [Concomitant]
     Active Substance: ESOMEPRAZOLE MAGNESIUM
  17. BACTRIM DS [Concomitant]
     Active Substance: SULFAMETHOXAZOLE\TRIMETHOPRIM
  18. PERCOCET [Concomitant]
     Active Substance: ACETAMINOPHEN\OXYCODONE HYDROCHLORIDE
  19. VITAMIN B6 [Concomitant]
     Active Substance: PYRIDOXINE HYDROCHLORIDE
  20. LASIX [Concomitant]
     Active Substance: FUROSEMIDE
  21. WARFARIN SODIUM [Concomitant]
     Active Substance: WARFARIN SODIUM

REACTIONS (4)
  - Nausea [Unknown]
  - Insomnia [Unknown]
  - Migraine [Unknown]
  - Fatigue [Unknown]
